FAERS Safety Report 9786037 (Version 1)
Quarter: 2013Q4

REPORT INFORMATION
  Report Type: Spontaneous
  Country: FR (occurrence: FR)
  Receive Date: 20131227
  Receipt Date: 20131227
  Transmission Date: 20140711
  Serious: Yes (Hospitalization)
  Sender: FDA-Public Use
  Company Number: FR-SA-2013SA132692

PATIENT
  Age: 73 Year
  Sex: Male

DRUGS (16)
  1. LOVENOX [Suspect]
     Indication: PROPHYLAXIS
     Route: 058
     Dates: start: 20131115, end: 20131129
  2. PIPERACILLIN SODIUM/TAZOBACTAM SODIUM [Suspect]
     Indication: ENDOCARDITIS
     Route: 042
     Dates: start: 20131123, end: 20131202
  3. ARIXTRA [Concomitant]
     Route: 058
     Dates: start: 20131129
  4. AMOXICILLIN [Concomitant]
     Indication: ENDOCARDITIS
     Dates: start: 20131112, end: 20131123
  5. AMOXICILLIN [Concomitant]
     Indication: ENDOCARDITIS
     Dates: start: 20131202
  6. RIFAMPICIN [Concomitant]
     Indication: ENDOCARDITIS
     Dates: start: 20131112
  7. SPIRIVA [Concomitant]
  8. BIPRETERAX [Concomitant]
  9. BISOCE [Concomitant]
  10. CORDARONE [Concomitant]
     Route: 048
  11. HYPERIUM [Concomitant]
  12. IMOVANE [Concomitant]
     Route: 048
  13. DIFFU K [Concomitant]
     Route: 048
  14. INEXIUM [Concomitant]
  15. LASILIX [Concomitant]
  16. LERCAN [Concomitant]

REACTIONS (2)
  - Leukopenia [Recovered/Resolved]
  - Thrombocytopenia [Recovered/Resolved]
